FAERS Safety Report 15062306 (Version 1)
Quarter: 2018Q2

REPORT INFORMATION
  Report Type: Report from Study
  Country: US (occurrence: US)
  Receive Date: 20180625
  Receipt Date: 20180625
  Transmission Date: 20180711
  Serious: No
  Sender: FDA-Public Use
  Company Number: US-AMGEN-USASL2018083151

PATIENT
  Age: 65 Year
  Sex: Female

DRUGS (3)
  1. ENBREL [Suspect]
     Active Substance: ETANERCEPT
     Indication: RHEUMATOID ARTHRITIS
     Dosage: 50 MG, QWK
     Route: 065
  2. TRILEPTAL [Suspect]
     Active Substance: OXCARBAZEPINE
     Indication: PRODUCT USED FOR UNKNOWN INDICATION
     Dosage: 150 MG, BID
     Route: 065
  3. TRILEPTAL [Suspect]
     Active Substance: OXCARBAZEPINE
     Dosage: 300 MG, BID
     Route: 065
     Dates: start: 201806

REACTIONS (9)
  - Paranasal sinus hypersecretion [Unknown]
  - Insomnia [Unknown]
  - Headache [Unknown]
  - Chills [Unknown]
  - Feeling hot [Unknown]
  - Paraesthesia [Unknown]
  - Burning sensation [Unknown]
  - Oral pain [Unknown]
  - Pyrexia [Unknown]

NARRATIVE: CASE EVENT DATE: 201805
